FAERS Safety Report 5677575-8 (Version None)
Quarter: 2008Q1

REPORT INFORMATION
  Report Type: 
  Country: None (occurrence: None)
  Receive Date: 20080324
  Receipt Date: 20080312
  Transmission Date: 20080703
  Serious: Yes (Other)
  Sender: FDA-Public Use
  Company Number: US-AMGEN-QUU268052

PATIENT
  Sex: Male

DRUGS (4)
  1. ENBREL [Suspect]
     Indication: PSORIASIS
     Route: 058
     Dates: start: 20070110
  2. UNSPECIFIED TOPICAL PRODUCT [Concomitant]
  3. BENICAR [Concomitant]
  4. VYTORIN [Concomitant]

REACTIONS (5)
  - DIZZINESS [None]
  - FATIGUE [None]
  - GINGIVAL INFECTION [None]
  - RASH [None]
  - TYPE 2 DIABETES MELLITUS [None]
